FAERS Safety Report 4803069-5 (Version None)
Quarter: 2005Q4

REPORT INFORMATION
  Report Type: 
  Country: None (occurrence: None)
  Receive Date: 20051013
  Receipt Date: 20050926
  Transmission Date: 20060501
  Serious: Yes (Other)
  Sender: FDA-Public Use
  Company Number: JP_040603589

PATIENT
  Age: 35 Year
  Sex: Male
  Weight: 66 kg

DRUGS (3)
  1. DULOXETINE HYDROCHLORIDE [Suspect]
     Indication: DISEASE RECURRENCE
     Dosage: 40 MG DAY
     Dates: start: 20040602, end: 20040604
  2. DULOXETINE HYDROCHLORIDE [Suspect]
     Indication: MAJOR DEPRESSION
     Dosage: 40 MG DAY
     Dates: start: 20040602, end: 20040604
  3. AMBON (ZOPLICONE) [Concomitant]

REACTIONS (6)
  - ALCOHOLIC LIVER DISEASE [None]
  - ALCOHOLISM [None]
  - BLOOD TRIGLYCERIDES INCREASED [None]
  - CONDITION AGGRAVATED [None]
  - HYPERLIPIDAEMIA [None]
  - THIRST [None]
